FAERS Safety Report 7584498-6 (Version None)
Quarter: 2011Q2

REPORT INFORMATION
  Report Type: 
  Country: None (occurrence: None)
  Receive Date: 20110630
  Receipt Date: 20110622
  Transmission Date: 20111010
  Serious: Yes (Death, Other)
  Sender: FDA-Public Use
  Company Number: US-MPIJNJ-2011-02414

PATIENT

DRUGS (4)
  1. VELCADE [Suspect]
     Indication: MULTIPLE MYELOMA
     Dosage: UNK
     Route: 040
  2. FAMOTIDINE [Concomitant]
     Indication: PROPHYLAXIS
  3. DIPHENHYDRAMINE [Concomitant]
     Indication: PROPHYLAXIS
  4. TANESPIMYCIN [Suspect]
     Indication: MULTIPLE MYELOMA
     Dosage: UNK
     Route: 042

REACTIONS (4)
  - RENAL FAILURE [None]
  - DISEASE PROGRESSION [None]
  - HEPATOTOXICITY [None]
  - CARDIAC AMYLOIDOSIS [None]
